FAERS Safety Report 12739001 (Version 1)
Quarter: 2016Q3

REPORT INFORMATION
  Report Type: Report from Study
  Country: GB (occurrence: GB)
  Receive Date: 20160912
  Receipt Date: 20160912
  Transmission Date: 20161109
  Serious: Yes (Other)
  Sender: FDA-Public Use
  Company Number: GB-JNJFOC-20160907374

PATIENT
  Age: 31 Year
  Sex: Female
  Weight: 92 kg

DRUGS (5)
  1. STELARA [Suspect]
     Active Substance: USTEKINUMAB
     Indication: PSORIASIS
     Route: 058
     Dates: start: 20150904
  2. CANESTEN [Concomitant]
     Active Substance: CLOTRIMAZOLE
     Route: 065
     Dates: start: 20160202, end: 20160524
  3. CAPASAL [Concomitant]
     Route: 065
     Dates: start: 20151019
  4. DIPROSALIC [Concomitant]
     Active Substance: BETAMETHASONE DIPROPIONATE
     Route: 065
     Dates: start: 20151020
  5. COCOIS [Concomitant]
     Route: 065
     Dates: start: 20151020

REACTIONS (2)
  - Abortion spontaneous [Unknown]
  - Exposure during pregnancy [Recovered/Resolved]

NARRATIVE: CASE EVENT DATE: 2016
